FAERS Safety Report 8553051-X (Version None)
Quarter: 2012Q3

REPORT INFORMATION
  Report Type: 
  Country: None (occurrence: None)
  Receive Date: 20120724
  Receipt Date: 20120724
  Transmission Date: 20120928
  Serious: Yes (Hospitalization, Other)
  Sender: FDA-Public Use
  Company Number: None

PATIENT
  Sex: Female
  Weight: 92.9874 kg

DRUGS (1)
  1. CYMBALTA [Suspect]
     Indication: NEOPLASM MALIGNANT
     Dosage: 30 MG, 1 DAILY
     Dates: start: 20120614

REACTIONS (1)
  - CEREBROVASCULAR ACCIDENT [None]
